FAERS Safety Report 7277439-2 (Version None)
Quarter: 2011Q1

REPORT INFORMATION
  Report Type: 
  Country: None (occurrence: None)
  Receive Date: 20110207
  Receipt Date: 20110202
  Transmission Date: 20110831
  Serious: Yes (Death, Hospitalization)
  Sender: FDA-Public Use
  Company Number: JP-SANOFI-AVENTIS-2010SA071723

PATIENT
  Age: 57 Year
  Sex: Male

DRUGS (9)
  1. 5-FU [Suspect]
     Route: 040
     Dates: start: 20090508, end: 20090508
  2. CALCIUM LEVOFOLINATE [Suspect]
     Indication: COLON CANCER
     Route: 041
     Dates: start: 20080718, end: 20080718
  3. CALCIUM LEVOFOLINATE [Suspect]
     Route: 041
     Dates: start: 20090508, end: 20090508
  4. 5-FU [Suspect]
     Route: 041
     Dates: start: 20080718, end: 20080718
  5. 5-FU [Suspect]
     Route: 041
     Dates: start: 20090508, end: 20090508
  6. ELPLAT [Suspect]
     Indication: COLON CANCER
     Route: 041
     Dates: start: 20080718, end: 20080718
  7. 5-FU [Suspect]
     Indication: COLON CANCER
     Route: 040
     Dates: start: 20080718, end: 20080718
  8. AVASTIN [Suspect]
     Indication: COLON CANCER
     Route: 041
     Dates: start: 20080718, end: 20090508
  9. ELPLAT [Suspect]
     Route: 041
     Dates: start: 20090508, end: 20090508

REACTIONS (2)
  - CEREBRAL INFARCTION [None]
  - POLYMYOSITIS [None]
